FAERS Safety Report 24242406 (Version 1)
Quarter: 2024Q3

REPORT INFORMATION
  Report Type: Spontaneous
  Country: US (occurrence: US)
  Receive Date: 20240823
  Receipt Date: 20240823
  Transmission Date: 20241017
  Serious: No
  Sender: BAUSCH AND LOMB
  Company Number: US-BAUSCHBL-2024BNL031836

PATIENT
  Sex: Female

DRUGS (2)
  1. MIEBO [Suspect]
     Active Substance: PERFLUOROHEXYLOCTANE
     Indication: Corneal abrasion
     Route: 065
  2. MIEBO [Suspect]
     Active Substance: PERFLUOROHEXYLOCTANE
     Indication: Product use in unapproved indication

REACTIONS (2)
  - Tongue discomfort [Unknown]
  - Product use in unapproved indication [Unknown]
